FAERS Safety Report 5651558-6 (Version None)
Quarter: 2008Q1

REPORT INFORMATION
  Report Type: 
  Country: None (occurrence: None)
  Receive Date: 20080305
  Receipt Date: 20080211
  Transmission Date: 20080703
  Serious: Yes (Hospitalization)
  Sender: FDA-Public Use
  Company Number: MX-WYE-H02539408

PATIENT
  Age: 52 Year
  Sex: Female

DRUGS (5)
  1. TYGACIL [Suspect]
     Indication: ESCHERICHIA URINARY TRACT INFECTION
     Dosage: 100MG INITIAL THEN 50MG EVERY 12 HOURS
     Route: 042
     Dates: start: 20080201, end: 20080201
  2. TYGACIL [Suspect]
     Indication: MULTIPLE-DRUG RESISTANCE
  3. NORVASC [Concomitant]
     Indication: HYPERTENSION
     Dosage: UNKNOWN
  4. AVAPRO [Concomitant]
     Indication: HYPERTENSION
     Dosage: UNKNOWN
  5. INSULIN GLARGINE [Concomitant]
     Indication: DIABETES MELLITUS
     Dosage: UNKNOWN

REACTIONS (3)
  - CONDITION AGGRAVATED [None]
  - MULTI-ORGAN FAILURE [None]
  - PANCREATITIS [None]
